FAERS Safety Report 21049795 (Version 1)
Quarter: 2022Q3

REPORT INFORMATION
  Report Type: Report from Study
  Country: US (occurrence: US)
  Receive Date: 20220706
  Receipt Date: 20220706
  Transmission Date: 20221027
  Serious: Yes (Other)
  Sender: FDA-Public Use
  Company Number: US-BoehringerIngelheim-2022-BI-179390

PATIENT
  Age: 46 Year
  Sex: Female

DRUGS (11)
  1. EMPAGLIFLOZIN [Suspect]
     Active Substance: EMPAGLIFLOZIN
     Indication: Type 2 diabetes mellitus
  2. INSULIN GLARGINE [Concomitant]
     Active Substance: INSULIN GLARGINE
     Indication: Diabetes mellitus
  3. INSULIN GLARGINE [Concomitant]
     Active Substance: INSULIN GLARGINE
     Indication: Cardiovascular disorder
  4. aspart [Concomitant]
     Indication: Diabetes mellitus
  5. aspart [Concomitant]
     Indication: Cardiovascular disorder
  6. ATORVASTATIN [Concomitant]
     Active Substance: ATORVASTATIN
     Indication: Diabetes mellitus
  7. ATORVASTATIN [Concomitant]
     Active Substance: ATORVASTATIN
     Indication: Cardiovascular disorder
  8. FENOFIBRATE [Concomitant]
     Active Substance: FENOFIBRATE
     Indication: Diabetes mellitus
  9. FENOFIBRATE [Concomitant]
     Active Substance: FENOFIBRATE
     Indication: Cardiovascular disorder
  10. METOPROLOL [Concomitant]
     Active Substance: METOPROLOL
     Indication: Diabetes mellitus
  11. METOPROLOL [Concomitant]
     Active Substance: METOPROLOL
     Indication: Cardiovascular disorder

REACTIONS (1)
  - Euglycaemic diabetic ketoacidosis [Unknown]
